FAERS Safety Report 23524000 (Version 2)
Quarter: 2024Q2

REPORT INFORMATION
  Report Type: Spontaneous
  Country: CA (occurrence: CA)
  Receive Date: 20240214
  Receipt Date: 20240425
  Transmission Date: 20240716
  Serious: Yes (Death)
  Sender: FDA-Public Use
  Company Number: CA-HLS-202400335

PATIENT
  Age: 79 Year
  Sex: Female

DRUGS (3)
  1. CLOZAPINE [Suspect]
     Active Substance: CLOZAPINE
     Indication: Product used for unknown indication
     Dosage: TABLETS DOSAGE FORM
     Route: 065
  2. MELATONIN [Concomitant]
     Active Substance: MELATONIN
     Dosage: NOT SPECIFIED DOSAGE FORM
     Route: 065
  3. VALPROIC ACID [Concomitant]
     Active Substance: VALPROIC ACID
     Dosage: NOT SPECIFIED DOSAGE FORM
     Route: 065

REACTIONS (8)
  - Death [Fatal]
  - Decreased appetite [Fatal]
  - Dysphagia [Fatal]
  - Dyspnoea [Fatal]
  - Hypotension [Fatal]
  - Pneumonia [Fatal]
  - Tachycardia [Fatal]
  - Urinary tract infection [Fatal]
